FAERS Safety Report 11707055 (Version 1)
Quarter: 2015Q4

REPORT INFORMATION
  Report Type: Spontaneous
  Country: US (occurrence: US)
  Receive Date: 20151104
  Receipt Date: 20151104
  Transmission Date: 20160304
  Serious: No
  Sender: FDA-Public Use
  Company Number: US-ELI_LILLY_AND_COMPANY-US201102000485

PATIENT
  Sex: Female

DRUGS (1)
  1. FORTEO [Suspect]
     Active Substance: TERIPARATIDE
     Indication: OSTEOPOROSIS
     Dosage: UNK, DAILY (1/D)

REACTIONS (11)
  - Nausea [Not Recovered/Not Resolved]
  - Nasopharyngitis [Unknown]
  - Cough [Unknown]
  - Arthralgia [Not Recovered/Not Resolved]
  - Ear pain [Unknown]
  - Drug dose omission [Recovered/Resolved]
  - Sinusitis [Unknown]
  - Dizziness [Unknown]
  - Throat irritation [Unknown]
  - Arthritis [Unknown]
  - Chest pain [Unknown]
